FAERS Safety Report 10267566 (Version 1)
Quarter: 2014Q2

REPORT INFORMATION
  Report Type: Spontaneous
  Country: US (occurrence: US)
  Receive Date: 20140630
  Receipt Date: 20140630
  Transmission Date: 20141212
  Serious: No
  Sender: FDA-Public Use
  Company Number: US-PFIZER INC-2014175529

PATIENT
  Age: 50 Year
  Sex: Female
  Weight: 58.96 kg

DRUGS (8)
  1. OXYCODONE HYDROCHLORIDE [Suspect]
     Indication: NEURALGIA
     Dosage: 5 MG, AS NEEDED
     Route: 048
     Dates: start: 20090327
  2. LYRICA [Suspect]
     Indication: NEURALGIA
     Dosage: 75 MG, 3X/DAY
     Route: 048
     Dates: start: 201401, end: 201406
  3. LYRICA [Suspect]
     Dosage: 75 MG, AS NEEDED
     Route: 048
     Dates: start: 20140623
  4. OXYCONTIN [Suspect]
     Indication: NEURALGIA
     Dosage: 20 MG, 2X/DAY
     Route: 048
     Dates: start: 2010
  5. OXYCONTIN [Suspect]
     Dosage: 40 MG, 2X/DAY
     Route: 048
  6. OXYCONTIN [Suspect]
     Dosage: 30 MG, 3X/DAY
     Route: 048
     Dates: start: 2014
  7. IBUPROFEN [Concomitant]
     Dosage: UNK
  8. AMITRIPTYLINE [Concomitant]
     Dosage: UNK

REACTIONS (8)
  - Weight increased [Not Recovered/Not Resolved]
  - Depression [Unknown]
  - Vulvovaginal dryness [Unknown]
  - Hypertension [Unknown]
  - Drug effect incomplete [Unknown]
  - Neuralgia [Unknown]
  - Disease progression [Unknown]
  - Intentional product misuse [Unknown]
